FAERS Safety Report 23014464 (Version 1)
Quarter: 2023Q4

REPORT INFORMATION
  Report Type: Spontaneous
  Country: JP (occurrence: None)
  Receive Date: 20231002
  Receipt Date: 20231002
  Transmission Date: 20240109
  Serious: Yes (Life-Threatening, Hospitalization)
  Sender: FDA-Public Use
  Company Number: 2023A221843

PATIENT
  Age: 81 Year
  Sex: Male
  Weight: 62 kg

DRUGS (13)
  1. IMFINZI [Suspect]
     Active Substance: DURVALUMAB
     Indication: Non-small cell lung cancer
     Route: 041
     Dates: start: 20230815, end: 20230815
  2. ISCOTIN [Concomitant]
     Active Substance: ISONIAZID
     Dosage: DOSE UNKNOWN
     Route: 065
     Dates: start: 20230706
  3. PYRIDOXAL [Concomitant]
     Active Substance: PYRIDOXAL
     Dosage: DOSE UNKNOWN
     Route: 065
     Dates: start: 20230706
  4. METHYLCOBALAMIN [Concomitant]
     Active Substance: METHYLCOBALAMIN
     Dosage: ADMINISTERED FOR A LONG TIME SINCE BEFORE MAY 2023, DOSE UNKNOWN
     Route: 065
  5. LIMAPROST [Concomitant]
     Active Substance: LIMAPROST
     Dosage: ADMINISTERED FOR A LONG TIME SINCE BEFORE MAY 2023, DOSE UNKNOWN
     Route: 065
  6. ESOMEPRAZOLE [Concomitant]
     Active Substance: ESOMEPRAZOLE
     Dosage: ADMINISTERED FOR A LONG TIME SINCE BEFORE MAY 2023, DOSE UNKNOWN
     Route: 065
  7. BISOPROLOL FUMARATE [Concomitant]
     Active Substance: BISOPROLOL FUMARATE
     Dosage: ADMINISTERED FOR A LONG TIME SINCE BEFORE MAY 2023, DOSE UNKNOWN
     Route: 065
  8. AMLODIPINE [Concomitant]
     Active Substance: AMLODIPINE BESYLATE
     Dosage: ADMINISTERED FOR A LONG TIME SINCE BEFORE MAY 2023, DOSE UNKNOWN
     Route: 065
  9. OLMESARTAN [Concomitant]
     Active Substance: OLMESARTAN
     Dosage: ADMINISTERED FOR A LONG TIME SINCE BEFORE MAY 2023, DOSE UNKNOWN
     Route: 065
  10. ATORVASTATIN [Concomitant]
     Active Substance: ATORVASTATIN
     Dosage: ADMINISTERED FOR A LONG TIME SINCE BEFORE MAY 2023, DOSE UNKNOWN
     Route: 065
  11. ALLOPURINOL [Concomitant]
     Active Substance: ALLOPURINOL
     Dosage: ADMINISTERED FOR A LONG TIME SINCE BEFORE MAY 2023, DOSE UNKNOWN
     Route: 065
  12. SILODOSIN [Concomitant]
     Active Substance: SILODOSIN
     Dosage: ADMINISTERED FOR A LONG TIME SINCE BEFORE MAY 2023, DOSE UNKNOWN
     Route: 065
  13. FEXOFENADINE HYDROCHLORIDE [Concomitant]
     Active Substance: FEXOFENADINE HYDROCHLORIDE
     Dosage: ADMINISTERED FOR A LONG TIME SINCE BEFORE MAY 2023, DOSE UNKNOWN
     Route: 065

REACTIONS (1)
  - Immune thrombocytopenia [Not Recovered/Not Resolved]

NARRATIVE: CASE EVENT DATE: 20230822
